FAERS Safety Report 22076268 (Version 2)
Quarter: 2023Q1

REPORT INFORMATION
  Report Type: Report from Study
  Country: US (occurrence: US)
  Receive Date: 20230309
  Receipt Date: 20230320
  Transmission Date: 20230417
  Serious: Yes (Death)
  Sender: FDA-Public Use
  Company Number: US-002147023-NVSC2023US053446

PATIENT
  Age: 71 Year
  Sex: Male
  Weight: 124 kg

DRUGS (6)
  1. VOTRIENT [Suspect]
     Active Substance: PAZOPANIB HYDROCHLORIDE
     Indication: Neoplasm malignant
     Dosage: 600 MG
     Route: 048
     Dates: end: 20130111
  2. METHENAMINE MANDELATE [Concomitant]
     Active Substance: METHENAMINE MANDELATE
     Indication: Product used for unknown indication
     Dosage: UNK
     Route: 065
  3. LEXAPRO [Concomitant]
     Active Substance: ESCITALOPRAM OXALATE
     Indication: Product used for unknown indication
     Dosage: UNK
     Route: 065
  4. FAMCICLOVIR [Concomitant]
     Active Substance: FAMCICLOVIR
     Indication: Product used for unknown indication
     Dosage: UNK
     Route: 065
  5. ONDANSETRON [Concomitant]
     Active Substance: ONDANSETRON
     Indication: Product used for unknown indication
     Dosage: UNK
     Route: 065
  6. ALISKIREN [Concomitant]
     Active Substance: ALISKIREN
     Indication: Product used for unknown indication
     Dosage: UNK
     Route: 065

REACTIONS (3)
  - Metastatic neoplasm [Fatal]
  - Malignant neoplasm progression [Fatal]
  - Cerebrovascular accident [Fatal]

NARRATIVE: CASE EVENT DATE: 20220416
